FAERS Safety Report 5918948-5 (Version None)
Quarter: 2008Q4

REPORT INFORMATION
  Report Type: 
  Country: None (occurrence: None)
  Receive Date: 20081010
  Receipt Date: 20080926
  Transmission Date: 20090506
  Serious: Yes (Hospitalization)
  Sender: FDA-Public Use
  Company Number: DSA_32471_2008

PATIENT
  Age: 29 Year
  Sex: Male

DRUGS (3)
  1. TAVOR /00273201/ (TAVOR - LORAZEPAM) 1 MG (NOT SPECIFIED) [Suspect]
     Dosage: (6 MG 1X, ORAL)
     Route: 048
     Dates: start: 20080924, end: 20080924
  2. ERGENYL CHRONO (ERGENYL CHRONO - VALPROATE SODIUM/VALPORIC ACID) 1000 [Suspect]
     Indication: DRUG USE FOR UNKNOWN INDICATION
     Dosage: (1000 MG QD ORAL)
     Route: 048
  3. SEROQUEL [Suspect]
     Indication: DRUG USE FOR UNKNOWN INDICATION
     Dosage: (400 MG TID ORAL)
     Route: 048

REACTIONS (5)
  - ACCIDENTAL OVERDOSE [None]
  - DEPRESSED LEVEL OF CONSCIOUSNESS [None]
  - DYSARTHRIA [None]
  - MEDICATION ERROR [None]
  - TACHYCARDIA [None]
